FAERS Safety Report 5281080-0 (Version None)
Quarter: 2007Q1

REPORT INFORMATION
  Report Type: 
  Country: None (occurrence: None)
  Receive Date: 20070323
  Receipt Date: 20070315
  Transmission Date: 20070707
  Serious: Yes (Other)
  Sender: FDA-Public Use
  Company Number: 154170ISR

PATIENT
  Age: 70 Year
  Sex: Male

DRUGS (1)
  1. LISINOPRIL [Suspect]
     Dosage: ?? (10 MG) ORAL
     Route: 048
     Dates: start: 20050615

REACTIONS (1)
  - ABNORMAL DREAMS [None]
